FAERS Safety Report 9485605 (Version 2)
Quarter: 2013Q4

REPORT INFORMATION
  Report Type: Spontaneous
  Country: DE (occurrence: DE)
  Receive Date: 20130829
  Receipt Date: 20131120
  Transmission Date: 20140711
  Serious: Yes (Other)
  Sender: FDA-Public Use
  Company Number: DE-ROCHE-1265892

PATIENT
  Age: 15 Year
  Sex: Male

DRUGS (6)
  1. XOLAIR [Suspect]
     Indication: URTICARIA CHRONIC
     Dosage: 1 DF
     Route: 065
     Dates: start: 201205
  2. XOLAIR [Suspect]
     Indication: OFF LABEL USE
     Dosage: 1 DF
     Route: 065
     Dates: start: 201305
  3. XOLAIR [Suspect]
     Dosage: 1 DF
     Route: 065
     Dates: start: 201301
  4. TELFAST (GERMANY) [Concomitant]
     Route: 065
     Dates: end: 201305
  5. KEPPRA [Concomitant]
  6. LAMICTAL [Concomitant]

REACTIONS (3)
  - Hepatic enzyme decreased [Recovered/Resolved]
  - Erythema [Recovering/Resolving]
  - Fatigue [Recovering/Resolving]
